FAERS Safety Report 23836648 (Version 1)
Quarter: 2024Q2

REPORT INFORMATION
  Report Type: Spontaneous
  Country: CN (occurrence: CN)
  Receive Date: 20240509
  Receipt Date: 20240509
  Transmission Date: 20240716
  Serious: Yes (Other)
  Sender: FDA-Public Use
  Company Number: CN-FreseniusKabi-FK202406891

PATIENT
  Age: 62 Year
  Sex: Male
  Weight: 63 kg

DRUGS (5)
  1. KABIVEN [Suspect]
     Active Substance: ALANINE\ARGININE\ASPARTIC ACID\CALCIUM CHLORIDE\DEXTROSE MONOHYDRATE\GLUTAMIC ACID\GLYCINE\HISTIDINE
     Indication: Nutritional supplementation
     Dosage: FORM OF ADMIN - INJECTION?DOSAGE 1 BAG
     Route: 041
     Dates: start: 20240401, end: 20240413
  2. ALANYL GLUTAMINE [Suspect]
     Active Substance: ALANYL GLUTAMINE
     Indication: Nutritional supplementation
     Dosage: FOA - INJECTION
     Route: 041
     Dates: start: 20240401, end: 20240413
  3. POTASSIUM CHLORIDE [Suspect]
     Active Substance: POTASSIUM CHLORIDE
     Indication: Nutritional supplementation
     Dosage: FOA - INJECTION
     Route: 041
     Dates: start: 20240401, end: 20240413
  4. VITAMINS [Suspect]
     Active Substance: VITAMINS
     Indication: Nutritional supplementation
     Dosage: FOA - POWDER FOR INJECTION
     Route: 041
     Dates: start: 20240401, end: 20240413
  5. VITAMINS [Suspect]
     Active Substance: VITAMINS
     Indication: Nutritional supplementation
     Dosage: FOA - POWDER FOR INJECTION
     Route: 041
     Dates: start: 20240401, end: 20240413

REACTIONS (3)
  - Hiccups [Recovered/Resolved]
  - Nausea [Recovered/Resolved]
  - Vomiting [Recovered/Resolved]

NARRATIVE: CASE EVENT DATE: 20240403
